FAERS Safety Report 19842485 (Version 1)
Quarter: 2021Q3

REPORT INFORMATION
  Report Type: Spontaneous
  Country: GB (occurrence: GB)
  Receive Date: 20210915
  Receipt Date: 20210915
  Transmission Date: 20211014
  Serious: Yes (Other)
  Sender: FDA-Public Use
  Company Number: GB-ROCHE-2910663

PATIENT
  Age: 42 Year
  Sex: Male

DRUGS (7)
  1. ACTILYSE [Suspect]
     Active Substance: ALTEPLASE
     Indication: THROMBOLYSIS
     Dosage: ALTEPLASE WITHDRAWN FOLLOWING ADMINISTRATION OF APPROXIMATELY 20% OF DOSE.
     Route: 042
     Dates: start: 20210908, end: 20210908
  2. RAMIPRIL. [Concomitant]
     Active Substance: RAMIPRIL
     Indication: ILL-DEFINED DISORDER
  3. BISOPROLOL [Concomitant]
     Active Substance: BISOPROLOL
     Indication: ILL-DEFINED DISORDER
  4. LEVOTHYROXINE. [Concomitant]
     Active Substance: LEVOTHYROXINE
     Indication: ILL-DEFINED DISORDER
  5. APIXABAN [Concomitant]
     Active Substance: APIXABAN
     Indication: ILL-DEFINED DISORDER
  6. ALLOPURINOL. [Concomitant]
     Active Substance: ALLOPURINOL
     Indication: ILL-DEFINED DISORDER
  7. AMIODARONE [Concomitant]
     Active Substance: AMIODARONE
     Indication: ILL-DEFINED DISORDER

REACTIONS (2)
  - Hyperhidrosis [Recovered/Resolved]
  - Dyspnoea [Recovered/Resolved]

NARRATIVE: CASE EVENT DATE: 20210908
